FAERS Safety Report 13272515 (Version 1)
Quarter: 2017Q1

REPORT INFORMATION
  Report Type: Spontaneous
  Country: IN (occurrence: US)
  Receive Date: 20170226
  Receipt Date: 20170226
  Transmission Date: 20170428
  Serious: Yes (Other)
  Sender: FDA-Public Use
  Company Number: None

PATIENT
  Age: 27 Year
  Sex: Male
  Weight: 57 kg

DRUGS (1)
  1. SELSUN [Suspect]
     Active Substance: SELENIUM SULFIDE
     Indication: DANDRUFF
     Dosage: QUANTITY:1 1;OTHER FREQUENCY:DAILY;?
     Route: 061
     Dates: start: 20170225

REACTIONS (2)
  - Alopecia [None]
  - Skin disorder [None]

NARRATIVE: CASE EVENT DATE: 20170225
